FAERS Safety Report 4383607-X (Version None)
Quarter: 2004Q2

REPORT INFORMATION
  Report Type: 
  Country: None (occurrence: None)
  Receive Date: 20040623
  Receipt Date: 20040414
  Transmission Date: 20050107
  Serious: Yes (Death, Hospitalization)
  Sender: FDA-Public Use
  Company Number: PHNR2004AU00908

PATIENT
  Age: 45 Year
  Sex: Male

DRUGS (7)
  1. CLOZARIL [Suspect]
     Indication: SCHIZOPHRENIA
     Dosage: 12.5 - 75 MG/DAY
     Dates: start: 20040317, end: 20040413
  2. VALPROATE SODIUM [Suspect]
  3. EFFEXOR [Suspect]
  4. HALOPERIDOL [Suspect]
  5. LORAZEPAM [Suspect]
  6. OLANZAPINE [Suspect]
  7. BENZTROPINE MESYLATE [Suspect]

REACTIONS (25)
  - ATRIAL FLUTTER [None]
  - CARDIAC FAILURE [None]
  - CELLULITIS [None]
  - DEATH [None]
  - DECREASED APPETITE [None]
  - DIFFICULTY IN WALKING [None]
  - FALL [None]
  - FLAT AFFECT [None]
  - GAIT DISTURBANCE [None]
  - HAEMOGLOBIN DECREASED [None]
  - HYPOTENSION [None]
  - INJURY [None]
  - LOBAR PNEUMONIA [None]
  - LYMPHOPENIA [None]
  - MALAISE [None]
  - MYCOPLASMA INFECTION [None]
  - MYOCARDITIS [None]
  - OXYGEN SATURATION DECREASED [None]
  - PERONEAL NERVE PALSY [None]
  - PYREXIA [None]
  - RESTLESSNESS [None]
  - RIB FRACTURE [None]
  - SOMNOLENCE [None]
  - TACHYCARDIA [None]
  - THROMBOCYTOPENIA [None]
